FAERS Safety Report 7912985-7 (Version None)
Quarter: 2011Q4

REPORT INFORMATION
  Report Type: 
  Country: None (occurrence: None)
  Receive Date: 20111114
  Receipt Date: 20111107
  Transmission Date: 20120403
  Serious: Yes (Hospitalization)
  Sender: FDA-Public Use
  Company Number: DE-BRISTOL-MYERS SQUIBB COMPANY-16214959

PATIENT
  Age: 60 Year
  Sex: Female
  Weight: 63 kg

DRUGS (1)
  1. YERVOY [Suspect]
     Indication: METASTATIC MALIGNANT MELANOMA
     Dosage: RECEIVED 3 ADMINISTRATION  189MG
     Route: 042
     Dates: start: 20111018

REACTIONS (3)
  - CONVULSION [None]
  - CONFUSIONAL STATE [None]
  - HYPOPHYSITIS [None]
